FAERS Safety Report 5982901-6 (Version None)
Quarter: 2008Q4

REPORT INFORMATION
  Report Type: 
  Country: None (occurrence: None)
  Receive Date: 20081125
  Receipt Date: 20080708
  Transmission Date: 20090506
  Serious: Yes (Hospitalization)
  Sender: FDA-Public Use
  Company Number: 2008MP000113

PATIENT
  Age: 63 Year
  Sex: Male

DRUGS (6)
  1. GLIADEL [Suspect]
     Indication: METASTASES TO CENTRAL NERVOUS SYSTEM
     Dosage: X1;ICER
     Dates: start: 20080501
  2. AVODART [Concomitant]
  3. TAMSULOSIN HCL [Concomitant]
  4. M.V.I. [Concomitant]
  5. REMERON [Concomitant]
  6. SPIRIVA [Concomitant]

REACTIONS (4)
  - DRUG ADMINISTRATION ERROR [None]
  - INTRACRANIAL HYPOTENSION [None]
  - OFF LABEL USE [None]
  - POSTOPERATIVE WOUND INFECTION [None]
